FAERS Safety Report 21735514 (Version 1)
Quarter: 2022Q4

REPORT INFORMATION
  Report Type: Report from Study
  Country: US (occurrence: US)
  Receive Date: 20221215
  Receipt Date: 20221215
  Transmission Date: 20230113
  Serious: Yes (Other)
  Sender: FDA-Public Use
  Company Number: US-BRISTOL-MYERS SQUIBB COMPANY-2022-150792

PATIENT
  Age: 54 Year
  Sex: Female
  Weight: 104 kg

DRUGS (3)
  1. REVLIMID [Suspect]
     Active Substance: LENALIDOMIDE
     Indication: Plasma cell myeloma
     Dosage: 14 OUT OF 21DAYS
     Route: 048
     Dates: start: 20221115
  2. DEXAMETHASONE [Suspect]
     Active Substance: DEXAMETHASONE
     Indication: Product used for unknown indication
  3. ASPIRIN [Concomitant]
     Active Substance: ASPIRIN
     Indication: Product used for unknown indication

REACTIONS (8)
  - Hypotension [Unknown]
  - Malaise [Unknown]
  - Blood sodium decreased [Unknown]
  - Weight decreased [Unknown]
  - Sinusitis [Unknown]
  - Blood glucose increased [Unknown]
  - Off label use [Unknown]
  - Loss of consciousness [Unknown]
